FAERS Safety Report 12419476 (Version 2)
Quarter: 2016Q3

REPORT INFORMATION
  Report Type: Spontaneous
  Country: GB (occurrence: GB)
  Receive Date: 20160531
  Receipt Date: 20160823
  Transmission Date: 20161109
  Serious: Yes (Other)
  Sender: FDA-Public Use
  Company Number: GB-JNJFOC-20160526643

PATIENT
  Age: 52 Year
  Sex: Male
  Weight: 111.5 kg

DRUGS (5)
  1. STELARA [Suspect]
     Active Substance: USTEKINUMAB
     Indication: PSORIASIS
     Dosage: APPROXIMATELY 16 DOSES
     Route: 058
     Dates: start: 20120116, end: 20160422
  2. RAMIPRIL. [Concomitant]
     Active Substance: RAMIPRIL
     Route: 065
     Dates: start: 20100715
  3. MONOFER [Concomitant]
     Active Substance: IRON ISOMALTOSIDE 1000
     Route: 065
     Dates: start: 20160407
  4. OMEPRAZOLE. [Concomitant]
     Active Substance: OMEPRAZOLE
     Route: 065
     Dates: start: 20151117
  5. FERROUS SULFATE. [Concomitant]
     Active Substance: FERROUS SULFATE
     Route: 065

REACTIONS (1)
  - Adenocarcinoma gastric [Unknown]

NARRATIVE: CASE EVENT DATE: 20160112
